FAERS Safety Report 24424861 (Version 1)
Quarter: 2024Q4

REPORT INFORMATION
  Report Type: Spontaneous
  Country: US (occurrence: None)
  Receive Date: 20241010
  Receipt Date: 20241010
  Transmission Date: 20250114
  Serious: Yes (Life-Threatening, Hospitalization)
  Sender: Public
  Company Number: None

PATIENT
  Age: 28 Year
  Sex: Female
  Weight: 75.15 kg

DRUGS (4)
  1. SINGULAIR [Suspect]
     Active Substance: MONTELUKAST SODIUM
     Indication: Asthma
     Dates: start: 20210217, end: 20210730
  2. RITALIN [Suspect]
     Active Substance: METHYLPHENIDATE HYDROCHLORIDE
  3. PROZAC [Suspect]
     Active Substance: FLUOXETINE HYDROCHLORIDE
  4. BENADRYL [Concomitant]
     Active Substance: DIPHENHYDRAMINE HYDROCHLORIDE

REACTIONS (7)
  - Accidental overdose [None]
  - Confusional state [None]
  - Disorientation [None]
  - Thinking abnormal [None]
  - Suicidal ideation [None]
  - Injury [None]
  - Brief resolved unexplained event [None]

NARRATIVE: CASE EVENT DATE: 20210730
